FAERS Safety Report 9869285 (Version 2)
Quarter: 2014Q1

REPORT INFORMATION
  Report Type: Spontaneous
  Country: US (occurrence: US)
  Receive Date: 20140205
  Receipt Date: 20140224
  Transmission Date: 20141002
  Serious: Yes (Life-Threatening, Hospitalization, Other)
  Sender: FDA-Public Use
  Company Number: US-CELGENEUS-163-21880-14014731

PATIENT
  Age: 66 Year
  Sex: Female
  Weight: 52.21 kg

DRUGS (16)
  1. REVLIMID [Suspect]
     Indication: PLASMA CELL MYELOMA
     Dosage: 15 MILLIGRAM
     Route: 048
     Dates: start: 20130810
  2. ASPIRIN [Concomitant]
     Indication: ROUTINE HEALTH MAINTENANCE
     Route: 065
  3. CYCLOPHOSPHAMIDE [Concomitant]
     Indication: CHEMOTHERAPY
     Route: 065
  4. BUMETANIDE [Concomitant]
     Indication: OEDEMA DUE TO CARDIAC DISEASE
     Route: 065
  5. ALDACTONE [Concomitant]
     Indication: OEDEMA DUE TO CARDIAC DISEASE
     Route: 065
  6. PROTONIX [Concomitant]
     Indication: GASTROOESOPHAGEAL REFLUX DISEASE
     Route: 065
  7. SIMETHICONE [Concomitant]
     Indication: GASTROOESOPHAGEAL REFLUX DISEASE
     Route: 065
  8. AMITIZA [Concomitant]
     Indication: CONSTIPATION
     Route: 065
  9. DULCOLAX [Concomitant]
     Indication: CONSTIPATION
     Route: 065
  10. VITAMIN D3 [Concomitant]
     Indication: VITAMIN SUPPLEMENTATION
     Route: 065
  11. VITAMIN E [Concomitant]
     Indication: VITAMIN SUPPLEMENTATION
     Route: 065
  12. PORCINE THYROID SUPPLEMENT [Concomitant]
     Indication: VITAMIN SUPPLEMENTATION
     Route: 065
  13. ASCORBIC ACID [Concomitant]
     Indication: VITAMIN SUPPLEMENTATION
     Route: 065
  14. MIDODRINE HCL [Concomitant]
     Indication: HYPERTENSION
     Route: 065
  15. BACTRIM DS [Concomitant]
     Indication: CARDIOVASCULAR EVENT PROPHYLAXIS
     Dosage: 800-160MG
     Route: 065
  16. DIFLUCAN [Concomitant]
     Indication: CARDIOVASCULAR EVENT PROPHYLAXIS
     Route: 065

REACTIONS (5)
  - Mental impairment [Not Recovered/Not Resolved]
  - Convulsion [Unknown]
  - Amnesia [Not Recovered/Not Resolved]
  - Depressed level of consciousness [Not Recovered/Not Resolved]
  - Asthenia [Not Recovered/Not Resolved]
